FAERS Safety Report 8379620-8 (Version None)
Quarter: 2012Q2

REPORT INFORMATION
  Report Type: 
  Country: None (occurrence: None)
  Receive Date: 20120523
  Receipt Date: 20120518
  Transmission Date: 20120825
  Serious: Yes (Other)
  Sender: FDA-Public Use
  Company Number: PT-ROXANE LABORATORIES, INC.-2012-RO-01276RO

PATIENT
  Age: 17 Year
  Sex: Female

DRUGS (2)
  1. METHOTREXATE [Suspect]
     Indication: JUVENILE ARTHRITIS
     Route: 048
  2. METHOTREXATE [Suspect]
     Indication: POLYARTHRITIS

REACTIONS (2)
  - RHEUMATOID NODULE [None]
  - DRUG INEFFECTIVE [None]
